FAERS Safety Report 9997720 (Version 2)
Quarter: 2014Q1

REPORT INFORMATION
  Report Type: Spontaneous
  Country: JP (occurrence: JP)
  Receive Date: 20140311
  Receipt Date: 20140331
  Transmission Date: 20141002
  Serious: Yes (Hospitalization)
  Sender: FDA-Public Use
  Company Number: JP-ASTRAZENECA-2014SE15959

PATIENT
  Age: 57 Year
  Sex: Male

DRUGS (9)
  1. NEXIUM [Suspect]
     Route: 048
     Dates: start: 20140211
  2. BAYASPIRIN [Suspect]
     Dosage: DOSE UNKNOWN
     Route: 065
  3. PLAVIX [Suspect]
     Dosage: DOSE UNKNOWN
     Route: 065
  4. LANSOPRAZOLE [Suspect]
     Dosage: DOSE UNKNOWN
     Route: 065
     Dates: end: 20140210
  5. LIPITOR [Suspect]
     Dosage: DOSE UNKNOWN
     Route: 065
  6. CONIEL [Concomitant]
     Dosage: DOSE UNKNOWN
     Route: 065
  7. ZETIA [Concomitant]
     Dosage: DOSE UNKNOWN
     Route: 065
  8. NITRODERM TTS [Concomitant]
     Dosage: DOSE UNKNOWN
     Route: 065
  9. MIYA BM [Concomitant]
     Dosage: DOSE UNKNOWN
     Route: 065
     Dates: start: 20140211

REACTIONS (1)
  - Interstitial lung disease [Recovering/Resolving]
